FAERS Safety Report 12980857 (Version 1)
Quarter: 2016Q4

REPORT INFORMATION
  Report Type: Spontaneous
  Country: DE (occurrence: DE)
  Receive Date: 20161128
  Receipt Date: 20161128
  Transmission Date: 20170207
  Serious: Yes (Hospitalization)
  Sender: FDA-Public Use
  Company Number: DE-IMPAX LABORATORIES, INC-2016-IPXL-02124

PATIENT
  Age: 42 Year
  Sex: Male

DRUGS (1)
  1. METFORMIN HYDROCHLORIDE ER [Suspect]
     Active Substance: METFORMIN HYDROCHLORIDE
     Indication: TYPE 2 DIABETES MELLITUS
     Dosage: UNK
     Route: 065

REACTIONS (4)
  - Toxicity to various agents [Recovered/Resolved]
  - Cardiac arrest [Recovered/Resolved]
  - Lactic acidosis [Recovered/Resolved]
  - Suicide attempt [Unknown]
